FAERS Safety Report 21046939 (Version 1)
Quarter: 2022Q3

REPORT INFORMATION
  Report Type: Spontaneous
  Country: CN (occurrence: CN)
  Receive Date: 20220706
  Receipt Date: 20220706
  Transmission Date: 20221026
  Serious: Yes (Hospitalization)
  Sender: FDA-Public Use
  Company Number: CN-PFIZER INC-PV202200014521

PATIENT
  Age: 68 Year
  Sex: Male
  Weight: 60 kg

DRUGS (3)
  1. CYTARABINE [Suspect]
     Active Substance: CYTARABINE
     Indication: Acute myeloid leukaemia
     Dosage: 15.0 MG, 2X/DAY, D4-10
     Route: 058
     Dates: start: 20220423, end: 20220430
  2. AZACITIDINE [Suspect]
     Active Substance: AZACITIDINE
     Indication: Acute myeloid leukaemia
     Dosage: 100 MG, 1X/DAY, D1-7
     Route: 058
     Dates: start: 20220420, end: 20220427
  3. OMACETAXINE MEPESUCCINATE [Suspect]
     Active Substance: OMACETAXINE MEPESUCCINATE
     Indication: Acute myeloid leukaemia
     Dosage: 1.5 MG, 1X/DAY, D4-8
     Route: 041
     Dates: start: 20220423, end: 20220502

REACTIONS (3)
  - Gastrointestinal disorder [Recovering/Resolving]
  - Fatigue [Recovering/Resolving]
  - Dizziness [Recovering/Resolving]

NARRATIVE: CASE EVENT DATE: 20220424
